FAERS Safety Report 8421702-6 (Version None)
Quarter: 2012Q2

REPORT INFORMATION
  Report Type: 
  Country: None (occurrence: None)
  Receive Date: 20120608
  Receipt Date: 20110804
  Transmission Date: 20120825
  Serious: No
  Sender: FDA-Public Use
  Company Number: US-GLAXOSMITHKLINE-A0939690A

PATIENT
  Age: 77 Year
  Sex: Female

DRUGS (2)
  1. ALTABAX [Suspect]
     Indication: INFECTION
     Route: 061
     Dates: start: 20110803, end: 20110803
  2. VITAMIN TAB [Concomitant]

REACTIONS (1)
  - BURNING SENSATION [None]
